FAERS Safety Report 7676131-X (Version None)
Quarter: 2011Q3

REPORT INFORMATION
  Report Type: 
  Country: None (occurrence: None)
  Receive Date: 20110805
  Receipt Date: 20110721
  Transmission Date: 20111222
  Serious: Yes (Death, Life-Threatening, Hospitalization, Other)
  Sender: FDA-Public Use
  Company Number: 2011MA009261

PATIENT
  Age: 43 Year
  Sex: Female
  Weight: 79.54 kg

DRUGS (1)
  1. ALPRAZOLAM [Suspect]
     Indication: OVERDOSE
     Dosage: 20 G;PO
     Route: 048

REACTIONS (29)
  - HEART RATE INCREASED [None]
  - BODY TEMPERATURE INCREASED [None]
  - CYANOSIS [None]
  - MYOCLONUS [None]
  - ABNORMAL BEHAVIOUR [None]
  - CARDIOMYOPATHY [None]
  - DISORIENTATION [None]
  - INSOMNIA [None]
  - MENTAL STATUS CHANGES [None]
  - EXCORIATION [None]
  - OVERDOSE [None]
  - INFECTION [None]
  - PSYCHOTIC DISORDER [None]
  - ARTERIOSCLEROSIS CORONARY ARTERY [None]
  - CONVULSION [None]
  - AUTONOMIC NERVOUS SYSTEM IMBALANCE [None]
  - APNOEA [None]
  - CONTUSION [None]
  - POSTURING [None]
  - INAPPROPRIATE SCHEDULE OF DRUG ADMINISTRATION [None]
  - CONVERSION DISORDER [None]
  - DRUG EFFECT DECREASED [None]
  - DRUG ABUSE [None]
  - HYPERTENSION [None]
  - DRUG WITHDRAWAL SYNDROME [None]
  - HALLUCINATIONS, MIXED [None]
  - CARDIOMEGALY [None]
  - TREMOR [None]
  - ARRHYTHMIA [None]
